FAERS Safety Report 19753810 (Version 1)
Quarter: 2021Q3

REPORT INFORMATION
  Report Type: Spontaneous
  Country: US (occurrence: US)
  Receive Date: 20210825
  Receipt Date: 20210825
  Transmission Date: 20211014
  Serious: Yes (Hospitalization)
  Sender: FDA-Public Use
  Company Number: None

PATIENT
  Age: 54 Year
  Sex: Female

DRUGS (1)
  1. MAYZENT [Suspect]
     Active Substance: SIPONIMOD
     Indication: MULTIPLE SCLEROSIS
     Route: 048
     Dates: start: 20200824

REACTIONS (5)
  - Hip fracture [None]
  - Dizziness [None]
  - Fall [None]
  - Femur fracture [None]
  - Hypotension [None]

NARRATIVE: CASE EVENT DATE: 20210305
